FAERS Safety Report 4367102-X (Version None)
Quarter: 2004Q2

REPORT INFORMATION
  Report Type: 
  Country: None (occurrence: None)
  Receive Date: 20040528
  Receipt Date: 20040519
  Transmission Date: 20050107
  Serious: Yes (Hospitalization)
  Sender: FDA-Public Use
  Company Number: FR-MERCK-0405FRA00071

PATIENT
  Age: 60 Year
  Sex: Male

DRUGS (1)
  1. PRIMAXIN [Suspect]
     Indication: URINARY TRACT INFECTION
     Route: 051
     Dates: start: 20040101

REACTIONS (3)
  - MENINGITIS ASEPTIC [None]
  - MENINGITIS VIRAL [None]
  - STATUS EPILEPTICUS [None]
